FAERS Safety Report 9911888 (Version 2)
Quarter: 2014Q1

REPORT INFORMATION
  Report Type: Spontaneous
  Country: US (occurrence: US)
  Receive Date: 20140219
  Receipt Date: 20140219
  Transmission Date: 20141002
  Serious: No
  Sender: FDA-Public Use
  Company Number: US-MYLANLABS-2013S1015323

PATIENT
  Age: 36 Year
  Sex: Female
  Weight: 62.13 kg

DRUGS (1)
  1. EPIPEN JR [Suspect]
     Dosage: 1:2000, 0.3 ML, SINGLE
     Dates: start: 20130701, end: 20130701

REACTIONS (4)
  - Accidental exposure to product [Not Recovered/Not Resolved]
  - Pain in extremity [Not Recovered/Not Resolved]
  - Pain in extremity [Not Recovered/Not Resolved]
  - Tremor [Not Recovered/Not Resolved]
